FAERS Safety Report 9303053 (Version 2)
Quarter: 2013Q2

REPORT INFORMATION
  Report Type: Report from Study
  Country: DE (occurrence: DE)
  Receive Date: 20130522
  Receipt Date: 20130617
  Transmission Date: 20140414
  Serious: Yes (Hospitalization)
  Sender: FDA-Public Use
  Company Number: DE-TEVA-2011005037

PATIENT
  Age: 51 Year
  Sex: Male
  Weight: 84 kg

DRUGS (13)
  1. BENDAMUSTINE HCL [Suspect]
     Indication: LYMPHOMA
     Route: 042
     Dates: start: 20110525
  2. RITUXIMAB [Suspect]
     Indication: LYMPHOMA
     Dates: start: 20110524
  3. TEMSIROLIMUS [Suspect]
     Indication: LYMPHOMA
     Dates: start: 20110526
  4. L-THYROXIN [Concomitant]
  5. PANTOPRAZOL [Concomitant]
  6. FOLATE [Concomitant]
  7. INSULIN LANTUS [Concomitant]
  8. INSULIN ACTRAPID [Concomitant]
  9. SALBUTAMOL [Concomitant]
  10. COTRISON [Concomitant]
  11. DIPROSONE [Concomitant]
  12. ZOFRAN [Concomitant]
  13. MCP [Concomitant]

REACTIONS (3)
  - Leukopenia [Recovered/Resolved]
  - Device related infection [Recovered/Resolved]
  - Soft tissue infection [Recovered/Resolved]
